FAERS Safety Report 8412892-X (Version None)
Quarter: 2012Q2

REPORT INFORMATION
  Report Type: 
  Country: None (occurrence: None)
  Receive Date: 20120605
  Receipt Date: 20120524
  Transmission Date: 20120825
  Serious: Yes (Other)
  Sender: FDA-Public Use
  Company Number: US-AMGEN-USASP2012015746

PATIENT
  Age: 50 Year
  Sex: Male

DRUGS (1)
  1. ENBREL [Suspect]
     Indication: ANKYLOSING SPONDYLITIS
     Dosage: 50 MG, QWK
     Dates: start: 20111204

REACTIONS (13)
  - NECK PAIN [None]
  - INJECTION SITE PAIN [None]
  - EYE PAIN [None]
  - INJECTION SITE SWELLING [None]
  - INJECTION SITE HAEMORRHAGE [None]
  - VISION BLURRED [None]
  - PALLOR [None]
  - CHEST PAIN [None]
  - DRY EYE [None]
  - ABDOMINAL DISTENSION [None]
  - ARTHRALGIA [None]
  - ABDOMINAL PAIN [None]
  - INJECTION SITE ERYTHEMA [None]
